FAERS Safety Report 9485181 (Version 1)
Quarter: 2013Q3

REPORT INFORMATION
  Report Type: Spontaneous
  Country: FR (occurrence: FR)
  Receive Date: 20130828
  Receipt Date: 20130828
  Transmission Date: 20140515
  Serious: Yes (Hospitalization)
  Sender: FDA-Public Use
  Company Number: FR-ROCHE-1267106

PATIENT
  Age: 74 Year
  Sex: Male

DRUGS (13)
  1. NAPROXEN [Suspect]
     Indication: PRODUCT USED FOR UNKNOWN INDICATION
     Route: 048
     Dates: start: 201302, end: 20130401
  2. TOPALGIC LP [Suspect]
     Indication: PRODUCT USED FOR UNKNOWN INDICATION
     Dosage: PROLONGED RELEASE TABLET
     Route: 048
     Dates: start: 2012, end: 20130401
  3. DOMPERIDONE [Suspect]
     Indication: PRODUCT USED FOR UNKNOWN INDICATION
     Route: 065
     Dates: end: 20130405
  4. COTAREG [Suspect]
     Indication: PRODUCT USED FOR UNKNOWN INDICATION
     Route: 048
     Dates: start: 2012, end: 20130403
  5. GLUCOPHAGE [Concomitant]
     Route: 065
  6. INEXIUM [Concomitant]
  7. PERMIXON [Concomitant]
  8. AMLOR [Concomitant]
  9. HYPERICUM [Concomitant]
  10. ALPRAZOLAM [Concomitant]
  11. DIFFU K [Concomitant]
  12. LANTUS [Concomitant]
  13. NOVONORM [Concomitant]

REACTIONS (2)
  - Renal failure acute [Recovered/Resolved]
  - Convulsion [Recovered/Resolved]
